FAERS Safety Report 6609715-8 (Version None)
Quarter: 2010Q1

REPORT INFORMATION
  Report Type: 
  Country: None (occurrence: None)
  Receive Date: 20100302
  Receipt Date: 20100219
  Transmission Date: 20100710
  Serious: Yes (Hospitalization)
  Sender: FDA-Public Use
  Company Number: US-SANOFI-AVENTIS-2010SA010322

PATIENT
  Sex: Male

DRUGS (4)
  1. GLYBURIDE [Suspect]
     Route: 065
  2. METFORMIN HCL [Suspect]
     Route: 065
  3. LANTUS [Concomitant]
     Dosage: DOSE:15 UNIT(S)
     Route: 058
     Dates: start: 20100101
  4. SOLOSTAR [Concomitant]
     Dates: start: 20100101

REACTIONS (3)
  - EYE IRRITATION [None]
  - FACIAL PALSY [None]
  - HYPERGLYCAEMIA [None]
